FAERS Safety Report 20878589 (Version 1)
Quarter: 2022Q2

REPORT INFORMATION
  Report Type: Spontaneous
  Country: US (occurrence: None)
  Receive Date: 20220526
  Receipt Date: 20220526
  Transmission Date: 20220721
  Serious: No
  Sender: FDA-Public Use
  Company Number: None

PATIENT
  Age: 55 Year
  Sex: Female
  Weight: 97.98 kg

DRUGS (1)
  1. BENLYSTA [Suspect]
     Active Substance: BELIMUMAB
     Indication: Systemic lupus erythematosus
     Dosage: FREQUENCY : WEEKLY;?INJECT 200MG SUBCUTANEOUSLY ONCE A WEEK ON THE SAME   DAY OF EACH WEEK IN THE AB
     Route: 058
     Dates: start: 202202

REACTIONS (1)
  - COVID-19 [None]
